FAERS Safety Report 9831046 (Version 3)
Quarter: 2014Q1

REPORT INFORMATION
  Report Type: Spontaneous
  Country: JP (occurrence: JP)
  Receive Date: 20140120
  Receipt Date: 20140224
  Transmission Date: 20141002
  Serious: Yes (Other)
  Sender: FDA-Public Use
  Company Number: PHHY2014JP005690

PATIENT
  Age: 78 Year
  Sex: Male

DRUGS (12)
  1. FAMVIR [Suspect]
     Indication: HERPES ZOSTER
     Dosage: 500 MG, TID
     Route: 048
     Dates: start: 20131228, end: 20131229
  2. INSULIN [Concomitant]
     Dosage: UNK UKN, UNK
     Route: 058
  3. MAGMITT [Concomitant]
     Route: 048
  4. ETIZOLAM [Concomitant]
     Route: 048
  5. LANSOPRAZOLE [Concomitant]
  6. SULPIRIDE [Concomitant]
  7. BAYASPIRIN [Concomitant]
     Route: 048
  8. NIFEDIPINE [Concomitant]
     Route: 048
  9. LAC B [Concomitant]
     Route: 048
  10. SHINLUCK [Concomitant]
     Route: 048
  11. PHELLOBERIN [Concomitant]
     Route: 048
  12. BARAMYCIN [Concomitant]
     Dosage: 5 G, UNK
     Route: 061
     Dates: start: 20131228, end: 20131228

REACTIONS (3)
  - Muscular weakness [Recovered/Resolved]
  - Decreased appetite [Recovered/Resolved]
  - Malaise [Recovered/Resolved]
